FAERS Safety Report 16595865 (Version 1)
Quarter: 2019Q3

REPORT INFORMATION
  Report Type: Spontaneous
  Country: FR (occurrence: FR)
  Receive Date: 20190719
  Receipt Date: 20190719
  Transmission Date: 20191004
  Serious: Yes (Hospitalization, Other)
  Sender: FDA-Public Use
  Company Number: FR-AUROBINDO-AUR-APL-2019-039922

PATIENT

DRUGS (2)
  1. AZITHROMYCIN FILM-COATED TABLETS 250MG [Suspect]
     Active Substance: AZITHROMYCIN
     Indication: SKIN INFECTION
     Dosage: 250 MILLIGRAM, DAILY
     Route: 048
     Dates: start: 20190403, end: 20190424
  2. TOBRAMYCIN. [Suspect]
     Active Substance: TOBRAMYCIN
     Indication: SKIN INFECTION
     Dosage: 300 MILLIGRAM, EVERY OTHER DAY
     Route: 042
     Dates: start: 20190305, end: 20190424

REACTIONS (3)
  - Acute kidney injury [Recovered/Resolved with Sequelae]
  - Hypocalcaemia [Recovered/Resolved]
  - Hypomagnesaemia [Recovered/Resolved]

NARRATIVE: CASE EVENT DATE: 20190424
